FAERS Safety Report 23756823 (Version 5)
Quarter: 2024Q3

REPORT INFORMATION
  Report Type: Report from Study
  Country: PL (occurrence: PL)
  Receive Date: 20240418
  Receipt Date: 20240711
  Transmission Date: 20241017
  Serious: Yes (Hospitalization)
  Sender: PFIZER
  Company Number: PL-ROCHE-3522178

PATIENT
  Age: 74 Year
  Sex: Male
  Weight: 80 kg

DRUGS (56)
  1. DOXORUBICIN HYDROCHLORIDE [Suspect]
     Active Substance: DOXORUBICIN HYDROCHLORIDE
     Indication: Diffuse large B-cell lymphoma
     Dosage: 100 MG, EVERY 3 WEEKS, ON 22/FEB/2024 RECEIVED MOST RECENT DOSE PRIOR TO AE
     Route: 042
     Dates: start: 20240222
  2. DOXORUBICIN HYDROCHLORIDE [Suspect]
     Active Substance: DOXORUBICIN HYDROCHLORIDE
     Dosage: 98 MG, ON 18/MAR/2024, RECEIVED MOST RECENT DOSE PRIOR TO AE
     Route: 042
     Dates: start: 20240318
  3. RITUXIMAB [Suspect]
     Active Substance: RITUXIMAB
     Indication: Diffuse large B-cell lymphoma
     Dosage: ON 22/FEB/2024, MOST RECENT DOSE OF RITUXIMAB (748 MG) PRIOR TO AE.ON 18/MAR/2024, RECEIVED MOST REC
     Route: 042
     Dates: start: 20240222
  4. RITUXIMAB [Suspect]
     Active Substance: RITUXIMAB
     Dosage: 18/MAR/2024, RECEIVED MOST RECENT DOSE OF RITUXIMAB (737 MG) PRIOR TO AE
     Route: 042
     Dates: start: 20240318
  5. PREDNISONE [Suspect]
     Active Substance: PREDNISONE
     Indication: Diffuse large B-cell lymphoma
     Dosage: ON 26/FEB/2024, RECENT DOSE OF PREDNISONE PRIOR TO AEON 21/MAR/2024, RECEIVED MOST RECENT DOSE OF PR
     Route: 048
     Dates: start: 20240222
  6. PREDNISONE [Suspect]
     Active Substance: PREDNISONE
     Dosage: 100 MG, EVERY 3 WEEKS, ON 26/FEB/2024, RECENT DOSE PRIOR TO AE
     Route: 048
     Dates: start: 20240226
  7. PREDNISONE [Suspect]
     Active Substance: PREDNISONE
     Dosage: 100 MG,ON 22/MAR/2024, RECEIVED MOST RECENT DOSE PRIOR TO AE
     Route: 048
     Dates: start: 20240321
  8. CYCLOPHOSPHAMIDE [Suspect]
     Active Substance: CYCLOPHOSPHAMIDE
     Indication: Diffuse large B-cell lymphoma
     Dosage: ON 22/FEB/2024, MOST RECENT DOSE OF CYCLOPHOSPHAMIDE PRIOR TO AE.ON 18/MAR/2024, RECEIVED MOST RECEN
     Route: 042
     Dates: start: 20240222
  9. CYCLOPHOSPHAMIDE [Suspect]
     Active Substance: CYCLOPHOSPHAMIDE
     Dosage: ON 18/MAR/2024, RECEIVED MOST RECENT DOSE (1470 MG) PRIOR TO AE
     Route: 042
     Dates: start: 20240318
  10. POLATUZUMAB VEDOTIN [Suspect]
     Active Substance: POLATUZUMAB VEDOTIN
     Indication: Diffuse large B-cell lymphoma
     Dosage: ON 22/FEB/2024, MOST RECENT DOSE OF POLATUZUMAB VEDOTIN PRIOR TO AE.ON 18/MAR/2024, RECEIVED MOST RE
     Route: 042
     Dates: start: 20240222
  11. POLATUZUMAB VEDOTIN [Suspect]
     Active Substance: POLATUZUMAB VEDOTIN
     Dosage: 149 MG, EVERY 3 WEEKS, 18/MAR/2024, RECEIVED MOST RECENT DOSE PRIOR TO AE
     Route: 042
     Dates: start: 20240318
  12. MESNA [Concomitant]
     Active Substance: MESNA
     Dosage: 400 MG, 3X/DAY
     Dates: start: 20240222, end: 20240222
  13. MESNA [Concomitant]
     Active Substance: MESNA
     Dosage: FREQ:.33 D;
     Route: 042
     Dates: start: 20240222, end: 20240222
  14. MESNA [Concomitant]
     Active Substance: MESNA
     Dosage: FREQ:.33 D;
     Route: 042
     Dates: start: 20240318, end: 20240319
  15. LEVOTHYROXINE [Concomitant]
     Active Substance: LEVOTHYROXINE\LEVOTHYROXINE SODIUM
     Indication: Hypothyroidism
     Dosage: 50 UG, 1X/DAY
     Route: 048
     Dates: start: 202311
  16. OSELTAMIVIR [Concomitant]
     Active Substance: OSELTAMIVIR
     Dosage: 75 MG, FREQ 0.5D
     Dates: start: 20240226, end: 20240301
  17. OSELTAMIVIR [Concomitant]
     Active Substance: OSELTAMIVIR
     Dosage: FREQ:.5 D;
     Route: 048
     Dates: start: 20240226, end: 20240301
  18. ACETAMINOPHEN [Concomitant]
     Active Substance: ACETAMINOPHEN
     Dosage: 1 G, 1X/DAY
     Route: 048
     Dates: start: 20240222, end: 20240222
  19. CLEMASTINE [Concomitant]
     Active Substance: CLEMASTINE
     Dosage: 2 MG, FREQ 0.5D
     Dates: start: 20240222, end: 20240222
  20. CLEMASTINE [Concomitant]
     Active Substance: CLEMASTINE
     Dosage: FREQ:.5 D;
     Route: 048
     Dates: start: 20240222, end: 20240222
  21. FILGRASTIM [Concomitant]
     Active Substance: FILGRASTIM
     Dosage: 48 IU, 1X/DAY
     Dates: start: 20240224, end: 20240224
  22. FILGRASTIM [Concomitant]
     Active Substance: FILGRASTIM
     Dosage: 48 IU, 1X/DAY
     Dates: start: 20240306, end: 20240307
  23. FILGRASTIM [Concomitant]
     Active Substance: FILGRASTIM
     Dosage: 48 IU, 1X/DAY
     Dates: start: 20240320
  24. ASPIRIN [Concomitant]
     Active Substance: ASPIRIN
     Dosage: 75 MG, 1X/DAY
     Route: 048
     Dates: start: 20240221
  25. ACYCLOVIR [Concomitant]
     Active Substance: ACYCLOVIR
     Dosage: 400 MG, FREQ: 0.5 D
     Dates: start: 20240222
  26. ACYCLOVIR [Concomitant]
     Active Substance: ACYCLOVIR
     Dosage: FREQ:.5 D;
     Route: 001
     Dates: start: 20240222
  27. CYTARABINE [Concomitant]
     Active Substance: CYTARABINE
     Dosage: 40 MG, 1X/DAY
     Route: 008
     Dates: start: 20240223, end: 20240223
  28. DEXAMETHASONE [Concomitant]
     Active Substance: DEXAMETHASONE
     Dosage: 4 MG, 1X/DAY
     Route: 008
     Dates: start: 20240223, end: 20240223
  29. ONDANSETRON [Concomitant]
     Active Substance: ONDANSETRON
     Dosage: 8 MG, FREQ:.0.5D
     Dates: start: 20240222, end: 20240223
  30. METHOTREXATE [Concomitant]
     Active Substance: METHOTREXATE
     Dosage: 15 MG, 1X/DAY
     Dates: start: 20240223, end: 20240223
  31. RASBURICASE [Concomitant]
     Active Substance: RASBURICASE
     Dosage: 3 MG, 1X/DAY
     Route: 042
     Dates: start: 20240219, end: 20240219
  32. METHOTREXATE [Concomitant]
     Active Substance: METHOTREXATE
     Dosage: 15 MG
     Route: 008
     Dates: start: 20240223, end: 20240223
  33. PREDNISONE [Concomitant]
     Active Substance: PREDNISONE
     Dosage: 50 MG, 1X/DAY
     Route: 048
     Dates: start: 20240219, end: 20240221
  34. ENOXAPARIN [Concomitant]
     Active Substance: ENOXAPARIN
     Dosage: 40 MG, 1X/DAY
     Route: 058
     Dates: start: 20240221
  35. ALLOPURINOL [Concomitant]
     Active Substance: ALLOPURINOL
     Dosage: 300 MG, 1X/DAY
     Route: 048
     Dates: start: 20240220
  36. SODIUM CHLORIDE [Concomitant]
     Active Substance: SODIUM CHLORIDE
     Dosage: 500 ML, FREQ:.0.5D
     Dates: start: 20240219, end: 20240226
  37. SODIUM CHLORIDE [Concomitant]
     Active Substance: SODIUM CHLORIDE
     Dosage: 10 ML
     Route: 042
     Dates: start: 20240307, end: 20240307
  38. SODIUM CHLORIDE [Concomitant]
     Active Substance: SODIUM CHLORIDE
     Dosage: 10 ML, 1X/DAY
     Route: 042
     Dates: start: 20240319, end: 20240319
  39. SODIUM CHLORIDE [Concomitant]
     Active Substance: SODIUM CHLORIDE
     Dosage: FREQ: 0.5 D;
     Dates: start: 20240327, end: 20240327
  40. SODIUM CHLORIDE [Concomitant]
     Active Substance: SODIUM CHLORIDE
     Dosage: FREQ:.5 D;
     Route: 042
     Dates: start: 20240327, end: 20240327
  41. SODIUM CHLORIDE [Concomitant]
     Active Substance: SODIUM CHLORIDE
     Dosage: FREQ:.5 D;
     Route: 042
     Dates: start: 20240219, end: 20240226
  42. TAMSULOSIN HYDROCHLORIDE [Concomitant]
     Active Substance: TAMSULOSIN HYDROCHLORIDE
     Indication: Benign prostatic hyperplasia
     Dosage: 0.4 MG, 1X/DAY
     Route: 048
  43. CEFTAZIDIME [Concomitant]
     Active Substance: CEFTAZIDIME
     Dosage: UNK
     Dates: start: 20240306, end: 20240313
  44. GRANULOCYTE COLONY-STIMULATING FACTOR NOS [Concomitant]
     Active Substance: GRANULOCYTE COLONY-STIMULATING FACTOR NOS
     Dosage: UNK
  45. AMOXICILLINUM [Concomitant]
     Dosage: 875 MG, 2X/DAY
     Dates: start: 20240312, end: 20240317
  46. AMOXICILLINUM [Concomitant]
     Dosage: FREQ:.5 D;
     Route: 048
     Dates: start: 20240312, end: 20240317
  47. ACIDUM CLAVULANICUM [Concomitant]
     Dosage: 125 MG
     Route: 048
     Dates: start: 20240312, end: 20240317
  48. CODEINE HYDROCHLORIDE/SULFOGAIACOL [Concomitant]
     Dosage: UNK
     Route: 048
     Dates: start: 20240308, end: 20240310
  49. GLYCERIN [Concomitant]
     Active Substance: GLYCERIN
     Dosage: 1 G
     Route: 054
     Dates: start: 20240310, end: 20240310
  50. GLYCERIN [Concomitant]
     Active Substance: GLYCERIN
     Dosage: 1 G
     Dates: start: 20240310, end: 20240310
  51. NYSTATIN [Concomitant]
     Active Substance: NYSTATIN
     Dosage: 1 ML, 4X/DAY
     Dates: start: 20240307, end: 20240312
  52. TORSEMIDE [Concomitant]
     Active Substance: TORSEMIDE
     Dosage: 2.5 MG, 1X/DAY
     Route: 048
     Dates: start: 20240307, end: 20240317
  53. TORSEMIDE [Concomitant]
     Active Substance: TORSEMIDE
     Dosage: 5 MG, 1X/DAY
     Route: 048
     Dates: start: 20240321, end: 20240327
  54. AMBROXOLI HYDROCHLORIDUM [Concomitant]
     Route: 048
     Dates: start: 20240312, end: 20240317
  55. CALCII CARBONAS [Concomitant]
     Route: 048
     Dates: start: 20240310
  56. NYSTATIN [Concomitant]
     Active Substance: NYSTATIN
     Dosage: FREQ:.25 D;
     Route: 048
     Dates: start: 20240307, end: 20240312

REACTIONS (2)
  - Febrile neutropenia [Recovered/Resolved]
  - Pneumonia [Recovered/Resolved]

NARRATIVE: CASE EVENT DATE: 20240305
